FAERS Safety Report 8698191 (Version 2)
Quarter: 2013Q4

REPORT INFORMATION
  Report Type: Spontaneous
  Country: US (occurrence: US)
  Receive Date: 20120802
  Receipt Date: 20131105
  Transmission Date: 20140711
  Serious: Yes (Disabling)
  Sender: FDA-Public Use
  Company Number: US-009507513-1207USA010755

PATIENT
  Age: 55 Year
  Sex: 0

DRUGS (2)
  1. ZOCOR [Suspect]
     Dosage: 80 MG, HS
     Route: 048
  2. NIASPAN [Suspect]
     Dosage: 2 G, QD

REACTIONS (5)
  - Muscular weakness [Unknown]
  - Liver disorder [Unknown]
  - Myalgia [Unknown]
  - Musculoskeletal disorder [Unknown]
  - Neuropathy peripheral [Unknown]
